FAERS Safety Report 4722818-8 (Version None)
Quarter: 2005Q3

REPORT INFORMATION
  Report Type: 
  Country: None (occurrence: None)
  Receive Date: 20050722
  Receipt Date: 20050713
  Transmission Date: 20060218
  Serious: Yes (Hospitalization)
  Sender: FDA-Public Use
  Company Number: US-JNJFOC-20050703064

PATIENT
  Sex: Male

DRUGS (1)
  1. DURAGESIC-100 [Suspect]
     Route: 062
     Dates: start: 20030701

REACTIONS (2)
  - SPINAL DECOMPRESSION [None]
  - SPINAL FUSION SURGERY [None]
